FAERS Safety Report 7579431-7 (Version None)
Quarter: 2011Q2

REPORT INFORMATION
  Report Type: 
  Country: None (occurrence: None)
  Receive Date: 20110629
  Receipt Date: 20110621
  Transmission Date: 20111010
  Serious: Yes (Hospitalization)
  Sender: FDA-Public Use
  Company Number: US-BIOGENIDEC-2011BI023050

PATIENT
  Age: 67 Year
  Sex: Female

DRUGS (3)
  1. AVONEX [Suspect]
     Indication: MULTIPLE SCLEROSIS
     Route: 030
     Dates: start: 20060301
  2. AVONEX [Suspect]
     Route: 030
     Dates: start: 20050701, end: 20051201
  3. AVONEX [Suspect]
     Route: 030
     Dates: start: 20060101, end: 20060201

REACTIONS (1)
  - CHOKING [None]
